FAERS Safety Report 6299483-4 (Version None)
Quarter: 2009Q3

REPORT INFORMATION
  Report Type: 
  Country: None (occurrence: None)
  Receive Date: 20090806
  Receipt Date: 20090729
  Transmission Date: 20100115
  Serious: Yes (Death, Life-Threatening, Hospitalization)
  Sender: FDA-Public Use
  Company Number: B0586199A

PATIENT
  Sex: Male

DRUGS (6)
  1. ONDANSETRON HCL [Suspect]
     Indication: DRUG USE FOR UNKNOWN INDICATION
     Route: 048
     Dates: start: 20090417, end: 20090419
  2. ALIMTA [Suspect]
     Indication: CHEMOTHERAPY
     Route: 042
     Dates: start: 20090417, end: 20090417
  3. PRIMPERAN [Suspect]
     Indication: DRUG USE FOR UNKNOWN INDICATION
     Route: 048
     Dates: start: 20090417, end: 20090422
  4. SOLUPRED [Suspect]
     Indication: DRUG USE FOR UNKNOWN INDICATION
     Route: 048
     Dates: start: 20090416, end: 20090418
  5. SPECIAFOLDINE [Suspect]
     Indication: DRUG USE FOR UNKNOWN INDICATION
     Route: 065
     Dates: start: 20090408
  6. VITAMIN B-12 [Suspect]
     Indication: DRUG USE FOR UNKNOWN INDICATION
     Route: 065
     Dates: start: 20090408

REACTIONS (7)
  - ACUTE PULMONARY OEDEMA [None]
  - DERMATITIS BULLOUS [None]
  - HYPERTHERMIA [None]
  - PURPURA [None]
  - SKIN DISORDER [None]
  - SKIN NECROSIS [None]
  - TOXIC SKIN ERUPTION [None]
